FAERS Safety Report 8821921 (Version 5)
Quarter: 2013Q2

REPORT INFORMATION
  Report Type: Spontaneous
  Country: US (occurrence: US)
  Receive Date: 20121003
  Receipt Date: 20130521
  Transmission Date: 20140414
  Serious: Yes (Hospitalization, Other)
  Sender: FDA-Public Use
  Company Number: US-009507513-1203USA00311

PATIENT
  Sex: Female
  Weight: 79.37 kg

DRUGS (10)
  1. FOSAMAX [Suspect]
     Indication: OSTEOPOROSIS PROPHYLAXIS
     Dosage: 70 MG, QW
     Route: 048
     Dates: start: 20040507, end: 20080211
  2. FOSAMAX PLUS D [Suspect]
     Indication: OSTEOPOROSIS PROPHYLAXIS
     Route: 048
  3. FOSAMAX [Suspect]
     Indication: OSTEOPOROSIS PROPHYLAXIS
     Dosage: 70 MG, QW
     Route: 048
     Dates: start: 20080212, end: 20101205
  4. ALENDRONATE SODIUM [Suspect]
     Indication: OSTEOPOROSIS PROPHYLAXIS
     Dosage: 70 MG, QW
     Route: 048
     Dates: start: 20040507, end: 20101205
  5. OCUVITE PRESERVISION [Concomitant]
     Dosage: UNK
     Route: 047
     Dates: start: 2002
  6. VITAMINS (UNSPECIFIED) [Concomitant]
     Dosage: UNK
     Dates: start: 2002
  7. CHONDROITIN SULFATE SODIUM (+) GLUCOSAMINE SULFATE [Concomitant]
     Dosage: UNK UNK
     Dates: start: 2002
  8. ASPIRIN [Concomitant]
     Dosage: 81 MG, QD
     Dates: start: 2002
  9. CALCIUM (UNSPECIFIED) (+) VITAMIN D (UNSPECIFIED) [Concomitant]
     Dosage: 1200 MG, UNK
     Dates: start: 2002
  10. HORMONES (UNSPECIFIED) [Concomitant]

REACTIONS (29)
  - Tonsillectomy [Unknown]
  - Tachycardia [Recovered/Resolved]
  - Shoulder arthroplasty [Unknown]
  - Osteonecrosis [Unknown]
  - Fall [Unknown]
  - Femur fracture [Recovering/Resolving]
  - Impaired healing [Unknown]
  - Jaw operation [Unknown]
  - Exostosis of jaw [Unknown]
  - Spinal column stenosis [Unknown]
  - Arthritis [Unknown]
  - Intervertebral disc protrusion [Unknown]
  - Muscular weakness [Unknown]
  - Biopsy breast [Unknown]
  - Chest discomfort [Unknown]
  - Oesophageal spasm [Unknown]
  - Tendon rupture [Unknown]
  - Spinal osteoarthritis [Unknown]
  - Medical device removal [Unknown]
  - Electrocardiogram ST segment abnormal [Unknown]
  - Blood pressure increased [Unknown]
  - Rotator cuff syndrome [Unknown]
  - Supraventricular tachycardia [Recovered/Resolved]
  - Pain in extremity [Unknown]
  - Pain in extremity [Unknown]
  - Back pain [Not Recovered/Not Resolved]
  - Hip arthroplasty [Unknown]
  - Bone trimming [Unknown]
  - Open reduction of fracture [Unknown]
